FAERS Safety Report 13144527 (Version 4)
Quarter: 2017Q2

REPORT INFORMATION
  Report Type: Report from Study
  Country: US (occurrence: US)
  Receive Date: 20170124
  Receipt Date: 20170612
  Transmission Date: 20170830
  Serious: Yes (Hospitalization, Other)
  Sender: FDA-Public Use
  Company Number: US-GILEAD-2017-0254188

PATIENT
  Age: 75 Year
  Sex: Female
  Weight: 59.86 kg

DRUGS (21)
  1. SIMVASTATIN. [Concomitant]
     Active Substance: SIMVASTATIN
  2. MAG-OX [Concomitant]
     Active Substance: MAGNESIUM OXIDE
  3. DIAZEPAM. [Concomitant]
     Active Substance: DIAZEPAM
  4. ZOLOFT [Concomitant]
     Active Substance: SERTRALINE HYDROCHLORIDE
  5. PLAVIX [Concomitant]
     Active Substance: CLOPIDOGREL BISULFATE
  6. ISOSORBIDE. [Concomitant]
     Active Substance: ISOSORBIDE
  7. MELOXICAM. [Concomitant]
     Active Substance: MELOXICAM
  8. IMDUR [Concomitant]
     Active Substance: ISOSORBIDE MONONITRATE
  9. LISINOPRIL. [Concomitant]
     Active Substance: LISINOPRIL
  10. FUROSEMIDE. [Concomitant]
     Active Substance: FUROSEMIDE
  11. NORVASC [Concomitant]
     Active Substance: AMLODIPINE BESYLATE
  12. LASIX [Concomitant]
     Active Substance: FUROSEMIDE
  13. AMBRISENTAN [Suspect]
     Active Substance: AMBRISENTAN
     Indication: PULMONARY ARTERIAL HYPERTENSION
     Dosage: 5 MG, QD
     Route: 065
     Dates: start: 20161108
  14. OMEPRAZOLE. [Concomitant]
     Active Substance: OMEPRAZOLE
  15. AMLODIPINE [Concomitant]
     Active Substance: AMLODIPINE BESYLATE
  16. MAGNESIUM [Concomitant]
     Active Substance: MAGNESIUM
  17. CLOPIDOGREL [Concomitant]
     Active Substance: CLOPIDOGREL BISULFATE
  18. MEDROL [Concomitant]
     Active Substance: METHYLPREDNISOLONE
  19. LEVOTHYROXINE. [Concomitant]
     Active Substance: LEVOTHYROXINE
  20. POLYETHYLENE GLYCOL [Concomitant]
     Active Substance: POLYETHYLENE GLYCOLS
  21. OXYGEN. [Concomitant]
     Active Substance: OXYGEN

REACTIONS (7)
  - CREST syndrome [Unknown]
  - Rash [Recovered/Resolved]
  - Cardiac disorder [Unknown]
  - Malaise [Unknown]
  - Dyspnoea [Unknown]
  - Epistaxis [Not Recovered/Not Resolved]
  - Product use issue [Unknown]

NARRATIVE: CASE EVENT DATE: 201705
